FAERS Safety Report 5132957-8 (Version None)
Quarter: 2006Q4

REPORT INFORMATION
  Report Type: 
  Country: None (occurrence: None)
  Receive Date: 20061019
  Receipt Date: 20061019
  Transmission Date: 20070319
  Serious: Yes (Other)
  Sender: FDA-Public Use
  Company Number: None

PATIENT
  Sex: Male
  Weight: 74.8435 kg

DRUGS (1)
  1. FLOMAX [Suspect]
     Indication: BENIGN PROSTATIC HYPERPLASIA
     Dosage: ONE CAPSULE 30 MIN AFTER BKFST PO
     Route: 048
     Dates: start: 20050928, end: 20061018

REACTIONS (6)
  - DRUG INEFFECTIVE [None]
  - INTERVERTEBRAL DISC DISORDER [None]
  - NECK PAIN [None]
  - NOCTURIA [None]
  - OSTEOPOROSIS [None]
  - SPINAL OSTEOARTHRITIS [None]
